FAERS Safety Report 7997879 (Version 2)
Quarter: 2012Q4

REPORT INFORMATION
  Report Type: 
  Country: CA (occurrence: CA)
  Receive Date: 20110620
  Receipt Date: 20121104
  Transmission Date: 20130627
  Serious: Yes (Death, Hospitalization)
  Sender: FDA-Public Use
  Company Number: PHHY2008CA15263

PATIENT
  Age: 44 Year
  Sex: Female

DRUGS (1)
  1. ZOMETA [Suspect]
     Indication: BREAST CANCER
     Dosage: 4 mg, QMO
     Route: 042
     Dates: start: 20060928, end: 20080721

REACTIONS (5)
  - Death [Fatal]
  - Blood calcium increased [Unknown]
  - Confusional state [Unknown]
  - Blood creatinine decreased [Unknown]
  - Arthralgia [Unknown]
